FAERS Safety Report 9091712 (Version 1)
Quarter: 2013Q1

REPORT INFORMATION
  Report Type: Report from Study
  Country: US (occurrence: US)
  Receive Date: 20130201
  Receipt Date: 20130201
  Transmission Date: 20140127
  Serious: No
  Sender: FDA-Public Use
  Company Number: US-ABBOTT-13P-163-1030103-00

PATIENT
  Sex: Male
  Weight: 96.25 kg

DRUGS (3)
  1. HUMIRA PEN [Suspect]
     Indication: CROHN^S DISEASE
     Dates: start: 201209
  2. LORTAB [Concomitant]
     Indication: ABDOMINAL PAIN UPPER
  3. PRILOSEC [Concomitant]
     Indication: DYSPEPSIA

REACTIONS (3)
  - Subcutaneous abscess [Not Recovered/Not Resolved]
  - Ear infection [Recovered/Resolved]
  - Pain in extremity [Not Recovered/Not Resolved]
